FAERS Safety Report 10705699 (Version 1)
Quarter: 2015Q1

REPORT INFORMATION
  Report Type: Spontaneous
  Country: US (occurrence: US)
  Receive Date: 20150112
  Receipt Date: 20150112
  Transmission Date: 20150721
  Serious: No
  Sender: FDA-Public Use
  Company Number: US-GLAXOSMITHKLINE-A1073471A

PATIENT

DRUGS (6)
  1. PROMACTA [Suspect]
     Active Substance: ELTROMBOPAG OLAMINE
     Indication: PLATELET DISORDER
     Route: 048
     Dates: start: 20140512
  2. AMICAR [Concomitant]
     Active Substance: AMINOCAPROIC ACID
  3. CAPTOPRIL. [Concomitant]
     Active Substance: CAPTOPRIL
  4. ADDERALL [Concomitant]
     Active Substance: AMPHETAMINE ASPARTATE\AMPHETAMINE SULFATE\DEXTROAMPHETAMINE SACCHARATE\DEXTROAMPHETAMINE SULFATE
  5. SEROQUEL [Concomitant]
     Active Substance: QUETIAPINE FUMARATE
  6. ACYCLOVIR. [Concomitant]
     Active Substance: ACYCLOVIR

REACTIONS (4)
  - Nasopharyngitis [Unknown]
  - Cough [Unknown]
  - Pharyngitis [Unknown]
  - Haemoptysis [Unknown]

NARRATIVE: CASE EVENT DATE: 20140512
